FAERS Safety Report 13502974 (Version 1)
Quarter: 2017Q2

REPORT INFORMATION
  Report Type: Spontaneous
  Country: US (occurrence: US)
  Receive Date: 20170502
  Receipt Date: 20170502
  Transmission Date: 20170830
  Serious: Yes (Other)
  Sender: FDA-Public Use
  Company Number: US-TEVA-765238USA

PATIENT
  Age: 22 Year
  Sex: Female
  Weight: 77.1 kg

DRUGS (3)
  1. GUAIFENESIN W/ DEXTROMETHORPHAN [Suspect]
     Active Substance: DEXTROMETHORPHAN\GUAIFENESIN
     Indication: COUGH
     Dosage: GUAIFENESIN 1200 MG, DEXTROMETHORPHAN HYDROBROMIDE 60 MG
     Route: 048
     Dates: start: 20170119, end: 20170119
  2. GUAIFENESIN W/ DEXTROMETHORPHAN [Suspect]
     Active Substance: DEXTROMETHORPHAN\GUAIFENESIN
     Dosage: GUAIFENESIN 1200 MG, DEXTROMETHORPHAN HYDROBROMIDE 60 MG
     Route: 048
     Dates: start: 20170120, end: 201703
  3. GUAIFENESIN W/ DEXTROMETHORPHAN [Suspect]
     Active Substance: DEXTROMETHORPHAN\GUAIFENESIN
     Indication: UPPER RESPIRATORY TRACT INFECTION
     Dosage: GUAIFENESIN 1200 MG, DEXTROMETHORPHAN HYDROBROMIDE 60 MG
     Route: 048

REACTIONS (5)
  - Hallucination [Recovered/Resolved]
  - Hangover [Recovered/Resolved]
  - Heart rate increased [Recovered/Resolved]
  - Hypertension [Recovered/Resolved]
  - Feeling drunk [Recovered/Resolved]

NARRATIVE: CASE EVENT DATE: 20170119
